FAERS Safety Report 5051272-4 (Version None)
Quarter: 2006Q3

REPORT INFORMATION
  Report Type: 
  Country: None (occurrence: None)
  Receive Date: 20060710
  Receipt Date: 20060706
  Transmission Date: 20061208
  Serious: Yes (Hospitalization, Other)
  Sender: FDA-Public Use
  Company Number: FRWYE074027MAR03

PATIENT
  Age: 70 Year
  Sex: Male

DRUGS (3)
  1. RAPAMUNE [Suspect]
     Indication: PROPHYLAXIS AGAINST TRANSPLANT REJECTION
     Dates: start: 20021212, end: 20021220
  2. CELLCEPT [Suspect]
     Indication: PROPHYLAXIS AGAINST TRANSPLANT REJECTION
     Dosage: 2 G 1X PER 1 DAY
     Dates: start: 20021211
  3. CORTANCYL (PREDNISONE, ,0) [Suspect]
     Indication: PROPHYLAXIS AGAINST TRANSPLANT REJECTION
     Dosage: 40 MG 1X PER 1 DAY
     Dates: start: 20021217

REACTIONS (3)
  - INTESTINAL OBSTRUCTION [None]
  - PROCEDURAL COMPLICATION [None]
  - RETROPERITONEAL HAEMATOMA [None]
